FAERS Safety Report 9036505 (Version 1)
Quarter: 2013Q1

REPORT INFORMATION
  Report Type: Spontaneous
  Country: US (occurrence: None)
  Receive Date: 20130117
  Receipt Date: 20130117
  Transmission Date: 20140127
  Serious: No
  Sender: FDA-Public Use
  Company Number: None

PATIENT
  Age: 18 Year
  Sex: Female
  Weight: 64 kg

DRUGS (2)
  1. EFFEXOR XR [Suspect]
     Route: 048
  2. ADDERALL XR [Suspect]
     Route: 048
     Dates: start: 20121226, end: 20130115

REACTIONS (6)
  - Dizziness [None]
  - Chest discomfort [None]
  - Agitation [None]
  - Serotonin syndrome [None]
  - Drug interaction [None]
  - Abnormal behaviour [None]
